FAERS Safety Report 20405309 (Version 2)
Quarter: 2022Q1

REPORT INFORMATION
  Report Type: Spontaneous
  Country: US (occurrence: US)
  Receive Date: 20220131
  Receipt Date: 20220210
  Transmission Date: 20220423
  Serious: Yes (Other)
  Sender: FDA-Public Use
  Company Number: US-BAYER-2022A012545

PATIENT
  Age: 29 Year
  Sex: Male

DRUGS (1)
  1. JIVI [Suspect]
     Active Substance: DAMOCTOCOG ALFA PEGOL
     Indication: Traumatic haemorrhage
     Dosage: 4100 IU, ONCE
     Route: 042
     Dates: start: 202201, end: 202201

REACTIONS (2)
  - Traumatic haemorrhage [Recovered/Resolved]
  - Limb injury [None]

NARRATIVE: CASE EVENT DATE: 20220101
